FAERS Safety Report 11182937 (Version 2)
Quarter: 2016Q2

REPORT INFORMATION
  Report Type: Report from Study
  Country: FR (occurrence: FR)
  Receive Date: 20150611
  Receipt Date: 20160408
  Transmission Date: 20160815
  Serious: Yes (Hospitalization, Other)
  Sender: FDA-Public Use
  Company Number: FR-JAZZ-JPI-P-001172

PATIENT
  Age: 63 Year
  Sex: Male
  Weight: 75 kg

DRUGS (23)
  1. XYREM [Suspect]
     Active Substance: SODIUM OXYBATE
     Dosage: 4.4 G, BID
     Route: 048
     Dates: start: 20071026, end: 2007
  2. MODIODAL [Concomitant]
     Active Substance: MODAFINIL
     Indication: NARCOLEPSY
     Dosage: 500 MG QD (3 TABLETS/AM + 2 TABLETS/NOON)
  3. CRESTOR [Concomitant]
     Active Substance: ROSUVASTATIN CALCIUM
     Indication: CORONARY ARTERY DISEASE
     Dates: start: 201107, end: 20111229
  4. TOFRANIL [Suspect]
     Active Substance: IMIPRAMINE HYDROCHLORIDE
     Indication: NARCOLEPSY
     Dosage: 1-1-0
     Route: 048
  5. MODIODAL [Concomitant]
     Active Substance: MODAFINIL
     Indication: CATAPLEXY
     Dosage: DF QD (3 TABLETS/AM + 1 TABLET/NOON)
     Route: 048
  6. ASPEGIC [Concomitant]
     Active Substance: ASPIRIN DL-LYSINE
     Indication: PRODUCT USED FOR UNKNOWN INDICATION
     Dosage: 75 MG, QD
  7. OROKEN [Concomitant]
     Active Substance: CEFIXIME
     Indication: BRONCHITIS
     Dosage: 200 MG, BID
     Dates: start: 20111206, end: 20111214
  8. ANAFRANIL [Concomitant]
     Active Substance: CLOMIPRAMINE HYDROCHLORIDE
     Indication: NARCOLEPSY
     Dosage: 75 MG, SINGLE
     Route: 048
  9. ANAFRANIL [Concomitant]
     Active Substance: CLOMIPRAMINE HYDROCHLORIDE
     Indication: CATAPLEXY
     Dosage: 150 MG QD (TWICE NIGHTLY)
  10. INEXIUM [Concomitant]
     Active Substance: ESOMEPRAZOLE
     Indication: PRODUCT USED FOR UNKNOWN INDICATION
  11. XYREM [Suspect]
     Active Substance: SODIUM OXYBATE
     Dosage: 4.5 G, BID
     Route: 048
     Dates: start: 2007
  12. PLAVIX [Concomitant]
     Active Substance: CLOPIDOGREL BISULFATE
     Indication: PRODUCT USED FOR UNKNOWN INDICATION
     Dosage: 75 MG, QD
  13. DUOPLAVIN [Concomitant]
     Active Substance: ASPIRIN\CLOPIDOGREL
     Indication: PRODUCT USED FOR UNKNOWN INDICATION
  14. MODIODAL [Concomitant]
     Active Substance: MODAFINIL
     Dosage: 400 MG QD (3 TABLETS/AM + 1 TABLET /NOON)
     Route: 048
  15. TENORMIN [Concomitant]
     Active Substance: ATENOLOL
     Indication: PRODUCT USED FOR UNKNOWN INDICATION
  16. RHINOFLUIMUCIL [Concomitant]
     Active Substance: ACETYLCYSTEINE\BENZALKONIUM CHLORIDE\TUAMINOHEPTANE SULFATE
     Indication: BRONCHITIS
     Dosage: 3 DF, TID
     Dates: start: 20111206, end: 20111214
  17. XYREM [Suspect]
     Active Substance: SODIUM OXYBATE
     Indication: CATAPLEXY
     Dosage: 2.25 G, BID
     Route: 048
     Dates: start: 20070218, end: 20070305
  18. XYREM [Suspect]
     Active Substance: SODIUM OXYBATE
     Dosage: 3.0 G, BID
     Route: 048
     Dates: start: 20070306, end: 20070315
  19. LAMISIL [Concomitant]
     Active Substance: TERBINAFINE HYDROCHLORIDE
     Indication: FUNGAL INFECTION
     Dosage: 1 DF SINGLE (IN AM)
     Dates: start: 200806
  20. PULMODEXANE [Concomitant]
     Active Substance: DEXTROMETHORPHAN HYDROBROMIDE
     Indication: BRONCHITIS
     Dosage: 300 MG, TID
     Dates: start: 20111206, end: 20111214
  21. XYREM [Suspect]
     Active Substance: SODIUM OXYBATE
     Indication: NARCOLEPSY
     Dosage: UNK UNK, BID
     Route: 048
     Dates: start: 2005
  22. XYREM [Suspect]
     Active Substance: SODIUM OXYBATE
     Dosage: 4.5 G, BID
     Route: 048
     Dates: start: 20070316, end: 20071025
  23. TOFRANIL [Suspect]
     Active Substance: IMIPRAMINE HYDROCHLORIDE
     Indication: CATAPLEXY

REACTIONS (25)
  - Hypercholesterolaemia [Recovered/Resolved]
  - Sleep paralysis [Recovered/Resolved]
  - Hyperhidrosis [Recovered/Resolved]
  - Breath sounds abnormal [Recovered/Resolved]
  - Inappropriate schedule of drug administration [Unknown]
  - Bronchitis [Recovered/Resolved]
  - Head discomfort [Recovered/Resolved]
  - Dental implantation [Recovered/Resolved]
  - Fungal infection [Recovered/Resolved]
  - Weight decreased [Unknown]
  - Cough [Recovered/Resolved]
  - Abnormal dreams [Recovered/Resolved]
  - Bone graft [Unknown]
  - Myocardial infarction [Recovered/Resolved]
  - Phlebitis [Recovered/Resolved]
  - Aphonia [Recovered/Resolved]
  - Back pain [Recovered/Resolved]
  - Depressed level of consciousness [Unknown]
  - Herpes ophthalmic [Unknown]
  - Dry mouth [Recovered/Resolved]
  - Enuresis [Unknown]
  - Tooth abscess [Unknown]
  - Tension [Unknown]
  - Night sweats [Recovered/Resolved]
  - Pyrexia [Unknown]

NARRATIVE: CASE EVENT DATE: 20070302
